FAERS Safety Report 6378994-7 (Version None)
Quarter: 2009Q3

REPORT INFORMATION
  Report Type: 
  Country: None (occurrence: None)
  Receive Date: 20090928
  Receipt Date: 20090916
  Transmission Date: 20100115
  Serious: Yes (Other)
  Sender: FDA-Public Use
  Company Number: PHHY2009BR40724

PATIENT
  Sex: Female
  Weight: 60 kg

DRUGS (2)
  1. MERIGEST [Suspect]
     Dosage: 1 TABLET (0.7/2 MG) A DAY
     Route: 048
     Dates: start: 20010101, end: 20090401
  2. SUPRELLE [Concomitant]

REACTIONS (5)
  - ABDOMINAL PAIN [None]
  - DIZZINESS [None]
  - FEELING HOT [None]
  - SPINAL CORD HERNIATION [None]
  - SURGERY [None]
